FAERS Safety Report 15099286 (Version 7)
Quarter: 2018Q4

REPORT INFORMATION
  Report Type: Report from Study
  Country: US (occurrence: US)
  Receive Date: 20180702
  Receipt Date: 20181127
  Transmission Date: 20190204
  Serious: Yes (Other)
  Sender: FDA-Public Use
  Company Number: US-PFIZER INC-2018259093

PATIENT
  Age: 48 Year
  Sex: Male
  Weight: 121 kg

DRUGS (8)
  1. SEPTRA [Suspect]
     Active Substance: SULFAMETHOXAZOLE\TRIMETHOPRIM
     Indication: ANTIFUNGAL PROPHYLAXIS
     Dosage: 1 DF, ONCE DAILY
     Route: 048
     Dates: start: 20180303, end: 20180608
  2. BASILIXIMAB [Suspect]
     Active Substance: BASILIXIMAB
     Indication: RENAL TRANSPLANT
     Dosage: 20 MG, OTHER (OR AND POD 4)
     Route: 042
     Dates: start: 20180302, end: 20180306
  3. METHYLPREDNISOLONE. [Suspect]
     Active Substance: METHYLPREDNISOLONE
     Indication: RENAL TRANSPLANT
     Dosage: 10 MG, ONCE DAILY
     Route: 048
     Dates: start: 20180302
  4. TACROLIMUS. [Suspect]
     Active Substance: TACROLIMUS
     Indication: RENAL TRANSPLANT
     Dosage: 4 MG, EVERY MORNING, 3 MG EVERY EVENING. ONCE DAILY
     Route: 048
     Dates: start: 20180303
  5. NYSTATIN. [Concomitant]
     Active Substance: NYSTATIN
     Dosage: 5 ML, UNK
     Dates: start: 20180303
  6. ASKP1240 [Suspect]
     Active Substance: BLESELUMAB
     Indication: RENAL TRANSPLANT
     Dosage: 200 MG, OTHER (OR, POD 7, POD 14)
     Route: 042
     Dates: start: 20180302
  7. PREDNISONE. [Suspect]
     Active Substance: PREDNISONE
     Indication: RENAL TRANSPLANT
     Dosage: 10 MG, ONCE DAILY
     Route: 048
     Dates: start: 20170719
  8. VALGANCICLOVIR. [Concomitant]
     Active Substance: VALGANCICLOVIR
     Dosage: 450 MG, UNK
     Dates: start: 20180303

REACTIONS (2)
  - Kidney transplant rejection [Recovered/Resolved]
  - Tubulointerstitial nephritis [Recovered/Resolved]

NARRATIVE: CASE EVENT DATE: 20180601
